FAERS Safety Report 7999463-4 (Version None)
Quarter: 2011Q4

REPORT INFORMATION
  Report Type: 
  Country: None (occurrence: None)
  Receive Date: 20111221
  Receipt Date: 20111219
  Transmission Date: 20120403
  Serious: No
  Sender: FDA-Public Use
  Company Number: US-PFIZER INC-2011308170

PATIENT
  Sex: Male

DRUGS (3)
  1. VIAGRA [Suspect]
     Dosage: UNK
  2. BENICAR [Concomitant]
     Dosage: UNK
  3. NEURONTIN [Suspect]
     Dosage: 400 MG, 3X/DAY

REACTIONS (1)
  - DRUG INEFFECTIVE [None]
